FAERS Safety Report 9747553 (Version 1)
Quarter: 2013Q4

REPORT INFORMATION
  Report Type: Spontaneous
  Country: US (occurrence: None)
  Receive Date: 20131205
  Receipt Date: 20131205
  Transmission Date: 20140711
  Serious: Yes (Hospitalization, Other)
  Sender: FDA-Public Use
  Company Number: 001634548A

PATIENT
  Age: 74 Year
  Sex: Female

DRUGS (4)
  1. RECLAIM ANTI-AGING DAY CREAM SPF 15 % [Suspect]
     Dosage: ONCE DAILY DERMAL
     Dates: start: 20131113
  2. METFORMIN [Concomitant]
  3. THYROID MEDICATION [Concomitant]
  4. ANXIETY AND BIPOLAR MEDICATIONS [Concomitant]

REACTIONS (1)
  - Chemical injury [None]
